FAERS Safety Report 11715653 (Version 1)
Quarter: 2015Q4

REPORT INFORMATION
  Report Type: Spontaneous
  Country: US (occurrence: US)
  Receive Date: 20151109
  Receipt Date: 20151109
  Transmission Date: 20160304
  Serious: Yes (Hospitalization)
  Sender: FDA-Public Use
  Company Number: US-JNJFOC-20151104680

PATIENT
  Age: 71 Year
  Sex: Female
  Weight: 117.03 kg

DRUGS (8)
  1. TAXOL [Suspect]
     Active Substance: PACLITAXEL
     Indication: OVARIAN EPITHELIAL CANCER
     Dosage: 1, 8, 15 EVERY 28 DAYS
     Route: 065
     Dates: start: 20141009, end: 20150903
  2. TAXOL [Suspect]
     Active Substance: PACLITAXEL
     Indication: OVARIAN EPITHELIAL CANCER
     Route: 065
     Dates: start: 201405, end: 201407
  3. CARBOPLATIN. [Concomitant]
     Active Substance: CARBOPLATIN
     Route: 065
     Dates: start: 201405, end: 201407
  4. ELESCLOMOL [Suspect]
     Active Substance: ELESCLOMOL
     Indication: OVARIAN EPITHELIAL CANCER
     Route: 065
     Dates: start: 201405, end: 201407
  5. XARELTO [Suspect]
     Active Substance: RIVAROXABAN
     Indication: THROMBOSIS
     Route: 048
     Dates: start: 201408, end: 201408
  6. ELESCLOMOL [Suspect]
     Active Substance: ELESCLOMOL
     Indication: OVARIAN EPITHELIAL CANCER
     Route: 065
     Dates: start: 20141009, end: 20150115
  7. TAXOL [Suspect]
     Active Substance: PACLITAXEL
     Indication: OVARIAN EPITHELIAL CANCER
     Dosage: C12 D26 WAS 70 MG/M2
     Route: 065
     Dates: start: 201509
  8. XARELTO [Suspect]
     Active Substance: RIVAROXABAN
     Indication: THROMBOSIS
     Route: 048

REACTIONS (2)
  - Abdominal wall abscess [Recovered/Resolved]
  - Skin necrosis [Recovered/Resolved]

NARRATIVE: CASE EVENT DATE: 20150915
